FAERS Safety Report 23046022 (Version 3)
Quarter: 2023Q4

REPORT INFORMATION
  Report Type: Spontaneous
  Country: JP (occurrence: JP)
  Receive Date: 20231009
  Receipt Date: 20231024
  Transmission Date: 20240109
  Serious: Yes (Death, Other)
  Sender: FDA-Public Use
  Company Number: JP-MSD-M2023-42071

PATIENT
  Age: 93 Year
  Sex: Female

DRUGS (1)
  1. LAGEVRIO [Suspect]
     Active Substance: MOLNUPIRAVIR
     Indication: COVID-19 treatment
     Dosage: 800 MILLIGRAM, BID
     Route: 048
     Dates: start: 20230911, end: 20230913

REACTIONS (5)
  - Haematemesis [Fatal]
  - COVID-19 [Fatal]
  - Gastrointestinal haemorrhage [Fatal]
  - Haematochezia [Fatal]
  - Death [Fatal]

NARRATIVE: CASE EVENT DATE: 20230901
